FAERS Safety Report 6040814-8 (Version None)
Quarter: 2009Q1

REPORT INFORMATION
  Report Type: 
  Country: None (occurrence: None)
  Receive Date: 20090116
  Receipt Date: 20080717
  Transmission Date: 20090719
  Serious: No
  Sender: FDA-Public Use
  Company Number: US-BRISTOL-MYERS SQUIBB COMPANY-14214589

PATIENT
  Age: 37 Year
  Sex: Male
  Weight: 88 kg

DRUGS (14)
  1. ABILIFY [Suspect]
     Indication: BIPOLAR DISORDER
     Dosage: INTERRUPTED ON 02-JUN-2008, RESTARTED ON 03-JUN-2008
     Route: 048
     Dates: start: 20080413
  2. ABILIFY [Suspect]
     Indication: MOOD SWINGS
     Dosage: INTERRUPTED ON 02-JUN-2008, RESTARTED ON 03-JUN-2008
     Route: 048
     Dates: start: 20080413
  3. CLONAZEPAM [Suspect]
  4. XANAX [Suspect]
  5. CATAPRES [Suspect]
  6. CENTRUM [Concomitant]
  7. NEXIUM [Concomitant]
  8. LISINOPRIL [Concomitant]
  9. COREG [Concomitant]
  10. ADVAIR DISKUS 100/50 [Concomitant]
  11. SPIRONOLACTONE [Concomitant]
  12. SINGULAIR [Concomitant]
  13. ASPIRIN [Concomitant]
  14. ATENOLOL [Concomitant]

REACTIONS (3)
  - DEPRESSION [None]
  - DIZZINESS [None]
  - SUICIDAL IDEATION [None]
